FAERS Safety Report 19179835 (Version 1)
Quarter: 2021Q2

REPORT INFORMATION
  Report Type: Spontaneous
  Country: US (occurrence: US)
  Receive Date: 20210426
  Receipt Date: 20210426
  Transmission Date: 20210717
  Serious: Yes (Other)
  Sender: FDA-Public Use
  Company Number: US-DRREDDYS-USA/USA/21/0134634

PATIENT
  Age: 24 Year
  Sex: Female

DRUGS (2)
  1. ZENATANE [Suspect]
     Active Substance: ISOTRETINOIN
     Indication: PRODUCT USED FOR UNKNOWN INDICATION
     Dosage: RMA ISSUE DATE: 10/13/2020 11:28:24 AM, 10/14/2020 3:04:59 PM.
     Route: 048
     Dates: start: 20200811, end: 20210408
  2. ZENATANE [Suspect]
     Active Substance: ISOTRETINOIN
     Dosage: RMA ISSUE DATE:12/18/2020 4:07:15 PM, 1/21/2021 3:32:57 PM ,3/5/2021 3:12:37 PM.
     Route: 048
     Dates: start: 20200811, end: 20210408

REACTIONS (2)
  - Product dose omission issue [Unknown]
  - Exposure during pregnancy [Unknown]
